FAERS Safety Report 8427505-0 (Version None)
Quarter: 2012Q2

REPORT INFORMATION
  Report Type: 
  Country: None (occurrence: None)
  Receive Date: 20120611
  Receipt Date: 20120606
  Transmission Date: 20120825
  Serious: No
  Sender: FDA-Public Use
  Company Number: US-TEVA-341871USA

PATIENT
  Sex: Male

DRUGS (3)
  1. RANITIDINE HCL [Concomitant]
     Indication: DYSPEPSIA
  2. METOPROLOL TARTRATE [Concomitant]
  3. PROAIR HFA [Suspect]
     Dates: start: 20090101

REACTIONS (1)
  - DYSPEPSIA [None]
